FAERS Safety Report 7327373-4 (Version None)
Quarter: 2011Q1

REPORT INFORMATION
  Report Type: 
  Country: None (occurrence: None)
  Receive Date: 20110302
  Receipt Date: 20110204
  Transmission Date: 20110831
  Serious: No
  Sender: FDA-Public Use
  Company Number: US-B.I. PHARMACEUTICALS,INC./RIDGEFIELD-2011-BP-03378BP

PATIENT
  Sex: Female

DRUGS (13)
  1. OMEPRAZOLE [Suspect]
     Indication: GASTROOESOPHAGEAL REFLUX DISEASE
  2. BENICAR [Suspect]
     Indication: HYPERTENSION
  3. ASA [Concomitant]
     Indication: PROPHYLAXIS
  4. CALCIUM [Concomitant]
     Indication: PROPHYLAXIS
  5. COREG [Concomitant]
     Indication: CARDIAC FAILURE CONGESTIVE
  6. ALONDRONATE [Concomitant]
     Indication: OSTEOPOROSIS
  7. PRAMPREXALL [Concomitant]
     Indication: RESTLESS LEGS SYNDROME
  8. CRESTOR [Concomitant]
     Indication: BLOOD CHOLESTEROL INCREASED
  9. VESICARE [Concomitant]
     Indication: ATONIC URINARY BLADDER
  10. PRADAXA [Suspect]
     Indication: ATRIAL FIBRILLATION
     Dosage: 300 MG
     Route: 048
     Dates: start: 20101201
  11. FUROSEMIDE [Concomitant]
     Indication: CARDIAC FAILURE CONGESTIVE
  12. VITAMIN D [Concomitant]
     Indication: PROPHYLAXIS
  13. MULTI-VITAMIN [Concomitant]
     Indication: PROPHYLAXIS

REACTIONS (2)
  - BLOOD PRESSURE INCREASED [None]
  - COUGH [None]
